FAERS Safety Report 15431165 (Version 1)
Quarter: 2018Q3

REPORT INFORMATION
  Report Type: Spontaneous
  Country: US (occurrence: US)
  Receive Date: 20180926
  Receipt Date: 20180926
  Transmission Date: 20181010
  Serious: No
  Sender: FDA-Public Use
  Company Number: US-INDIVIOR LIMITED-INDV-107551-2018

PATIENT
  Age: 24 Year
  Sex: Male

DRUGS (3)
  1. SUBOXONE [Suspect]
     Active Substance: BUPRENORPHINE HYDROCHLORIDE\NALOXONE HYDROCHLORIDE
     Dosage: CUTTING INTO FOUR PIECES AND TAKING ONE PIECE DAILY
     Route: 060
     Dates: start: 2017, end: 20180109
  2. SUBOXONE [Suspect]
     Active Substance: BUPRENORPHINE HYDROCHLORIDE\NALOXONE HYDROCHLORIDE
     Indication: PAIN
     Dosage: 8MG ONE FILM A DAY
     Route: 060
     Dates: start: 201707
  3. PERCOCET                           /00446701/ [Concomitant]
     Active Substance: ACETAMINOPHEN\OXYCODONE HYDROCHLORIDE\OXYCODONE TEREPHTHALATE
     Indication: PAIN
     Dosage: UNK
     Route: 065

REACTIONS (6)
  - Drug dose omission [Recovered/Resolved]
  - Insomnia [Unknown]
  - Wrong technique in product usage process [Recovered/Resolved]
  - Hyperhidrosis [Unknown]
  - Off label use [Recovered/Resolved]
  - Euphoric mood [Unknown]

NARRATIVE: CASE EVENT DATE: 2017
